FAERS Safety Report 9672440 (Version 2)
Quarter: 2016Q2

REPORT INFORMATION
  Report Type: Report from Study
  Country: US (occurrence: US)
  Receive Date: 20131106
  Receipt Date: 20160621
  Transmission Date: 20160815
  Serious: Yes (Other)
  Sender: FDA-Public Use
  Company Number: US-ROCHE-1300066

PATIENT
  Sex: Female

DRUGS (16)
  1. ADVAIR HFA [Concomitant]
     Active Substance: FLUTICASONE PROPIONATE\SALMETEROL XINAFOATE
     Dosage: 1 PUFF, TWICE A DAY
     Route: 065
  2. PROAIR HFA [Concomitant]
     Active Substance: ALBUTEROL SULFATE
     Indication: DYSPNOEA
     Dosage: 90MCG/ACTUATION 2 PUFFS FROM THE INHALER EVERY 4H.
     Route: 065
  3. MOTRIN [Concomitant]
     Active Substance: IBUPROFEN
     Dosage: AS NEEDED
     Route: 048
  4. ALBUTEROL SULFATE. [Concomitant]
     Active Substance: ALBUTEROL SULFATE
     Indication: DYSPNOEA
     Dosage: 90MCG/ACTUATION 4
     Route: 065
  5. NORETHINDRONE. [Concomitant]
     Active Substance: NORETHINDRONE
     Dosage: 1 TABLET BY MOUTH DAILY FOR 28 DAYS
     Route: 048
  6. PROZAC [Concomitant]
     Active Substance: FLUOXETINE HYDROCHLORIDE
     Dosage: ONCE DAILY, IN THE MORNING
     Route: 048
  7. ZYRTEC [Concomitant]
     Active Substance: CETIRIZINE HYDROCHLORIDE
     Dosage: DAILY, IN PM
     Route: 065
  8. TYLENOL SINUS (UNK INGREDIENTS) [Concomitant]
     Indication: HYPERSENSITIVITY
  9. NEXIUM [Concomitant]
     Active Substance: ESOMEPRAZOLE MAGNESIUM
     Dosage: (SEE B5 FOR ADDITIONAL DOSING DETAILS)
     Route: 065
  10. GAMUNEX [Concomitant]
     Active Substance: HUMAN IMMUNOGLOBULIN G
     Dosage: (10 GRAMS) WEEKLY (MONDAY)
     Route: 058
  11. LIDOCAINE - PRILOCAIN CREAM [Concomitant]
     Dosage: APPLY TO SITES PRIOR TO GAMUNEX ADMINISTRATION.
     Route: 061
  12. ALBUTEROL SULFATE. [Concomitant]
     Active Substance: ALBUTEROL SULFATE
     Dosage: 2.5MG/3ML (0.083%)
     Route: 065
  13. XOLAIR [Suspect]
     Active Substance: OMALIZUMAB
     Indication: ASTHMA
     Route: 058
  14. BUDESONIDE. [Concomitant]
     Active Substance: BUDESONIDE
     Dosage: USE 1/2 RESPULE IN EACH NARES TWICE A DAY
     Route: 045
  15. CLONAZEPAM. [Suspect]
     Active Substance: CLONAZEPAM
     Indication: PRODUCT USED FOR UNKNOWN INDICATION
     Dosage: ^TWICE DAILY SCHEDULED DOSAGE^ 12 HRS
     Route: 065
  16. NEXIUM [Concomitant]
     Active Substance: ESOMEPRAZOLE MAGNESIUM
     Dosage: ONCE DAILY
     Route: 048

REACTIONS (15)
  - Maternal exposure during pregnancy [Unknown]
  - Productive cough [Unknown]
  - Abortion spontaneous [Unknown]
  - Sinusitis [Unknown]
  - Red cell distribution width abnormal [Unknown]
  - Pain in extremity [Unknown]
  - Pain [Unknown]
  - Upper respiratory tract infection [Unknown]
  - Insomnia [Unknown]
  - Wheezing [Unknown]
  - Bone loss [Unknown]
  - White blood cell disorder [Unknown]
  - Restlessness [Unknown]
  - Upper-airway cough syndrome [Unknown]
  - Rhinitis allergic [Unknown]
